FAERS Safety Report 18296849 (Version 1)
Quarter: 2020Q3

REPORT INFORMATION
  Report Type: Spontaneous
  Country: CA (occurrence: CA)
  Receive Date: 20200922
  Receipt Date: 20200922
  Transmission Date: 20201103
  Serious: Yes (Death, Other)
  Sender: FDA-Public Use
  Company Number: CA-PFIZER INC-2020071164

PATIENT
  Age: 50 Year
  Sex: Female

DRUGS (9)
  1. IBRANCE [Suspect]
     Active Substance: PALBOCICLIB
     Dosage: 125 MG, CYCLIC (TAKE 1 CAPSULE BY MOUTH ONCE DAILY FOR 21 DAYS IN A ROW. STOP FOR 7 DAYS)
     Route: 048
     Dates: start: 20191028
  2. VITAMIN C [Concomitant]
     Active Substance: ASCORBIC ACID
     Dosage: 500 MG, DAILY
  3. LORAZEPAM. [Concomitant]
     Active Substance: LORAZEPAM
     Dosage: 0.5 MG, DAILY (2HRS?AT BED TIME)
  4. SUPER CALCIUM [Concomitant]
     Dosage: 600 MG, 2X/DAY
  5. CLOXACILLIN [Concomitant]
     Active Substance: CLOXACILLIN
     Dosage: 500 MG, 3X/DAY (FOR 10 DAYS)
  6. VIT D [Concomitant]
     Active Substance: VITAMIN D NOS
     Dosage: 400 IU, 2X/DAY
  7. LETROZOLE. [Concomitant]
     Active Substance: LETROZOLE
     Dosage: UNK
  8. METOPROLOL. [Concomitant]
     Active Substance: METOPROLOL
     Dosage: 5 MG, 2X/DAY (BID)
  9. CANDESARTAN. [Concomitant]
     Active Substance: CANDESARTAN
     Dosage: 4 MG, DAILY

REACTIONS (1)
  - Death [Fatal]
